FAERS Safety Report 18211916 (Version 1)
Quarter: 2020Q3

REPORT INFORMATION
  Report Type: Spontaneous
  Country: US (occurrence: US)
  Receive Date: 20200831
  Receipt Date: 20200831
  Transmission Date: 20201103
  Serious: No
  Sender: FDA-Public Use
  Company Number: US-CIPLA LTD.-2020US00749

PATIENT

DRUGS (5)
  1. LIPITOR [Concomitant]
     Active Substance: ATORVASTATIN CALCIUM
     Dosage: 10 MILLIGRAM
     Route: 065
  2. ALENDRONATE [Suspect]
     Active Substance: ALENDRONATE SODIUM
     Indication: OSTEOPOROSIS
     Dosage: 70 MILLIGRAM, ONCE IN A WEEK
     Route: 048
     Dates: start: 201411, end: 201910
  3. LIPITOR [Concomitant]
     Active Substance: ATORVASTATIN CALCIUM
     Indication: BLOOD CHOLESTEROL ABNORMAL
     Dosage: 40 MILLIGRAM
     Route: 065
  4. PROBIOTICS NOS [Concomitant]
     Active Substance: PROBIOTICS NOS
     Indication: SUPPLEMENTATION THERAPY
     Dosage: UNK
     Route: 065
  5. LOSARTAN. [Concomitant]
     Active Substance: LOSARTAN
     Indication: HYPERTENSION
     Dosage: 25 MILLIGRAM, QD
     Route: 065

REACTIONS (4)
  - Groin pain [Recovering/Resolving]
  - Sitting disability [Recovering/Resolving]
  - Body height decreased [Unknown]
  - Limb discomfort [Recovering/Resolving]

NARRATIVE: CASE EVENT DATE: 201910
